FAERS Safety Report 8992400 (Version 2)
Quarter: 2013Q1

REPORT INFORMATION
  Report Type: Spontaneous
  Country: DK (occurrence: DK)
  Receive Date: 20121231
  Receipt Date: 20130114
  Transmission Date: 20140127
  Serious: Yes (Other)
  Sender: FDA-Public Use
  Company Number: DK-JNJFOC-20121210814

PATIENT
  Age: 32 Year
  Sex: Male

DRUGS (5)
  1. INFLIXIMAB, RECOMBINANT [Suspect]
     Indication: PSORIASIS
     Route: 042
  2. ISONIAZID [Concomitant]
     Indication: LATENT TUBERCULOSIS
     Route: 065
  3. PYRIDOXINE [Concomitant]
     Indication: LATENT TUBERCULOSIS
     Route: 065
  4. METHOTREXATE [Concomitant]
     Route: 065
  5. FOLIC ACID [Concomitant]
     Route: 065

REACTIONS (4)
  - Neurological symptom [Recovered/Resolved]
  - Guillain-Barre syndrome [Recovered/Resolved]
  - Infection [Recovered/Resolved]
  - Demyelination [Recovered/Resolved]
